FAERS Safety Report 4889953-5 (Version None)
Quarter: 2006Q1

REPORT INFORMATION
  Report Type: 
  Country: None (occurrence: None)
  Receive Date: 20060123
  Receipt Date: 20060123
  Transmission Date: 20060701
  Serious: Yes (Death)
  Sender: FDA-Public Use
  Company Number: None

PATIENT
  Sex: Female
  Weight: 109.3 kg

DRUGS (3)
  1. DOCETAXEL [Suspect]
     Indication: BREAST CANCER
     Dosage: SEE IMAGE
     Route: 042
     Dates: start: 20051118
  2. DOXORUBICIN [Suspect]
     Dosage: SEE IMAGE
     Route: 042
     Dates: start: 20051118
  3. CYTOXAN [Suspect]
     Dosage: SEE IMAGE
     Route: 042
     Dates: start: 20051118

REACTIONS (5)
  - BLOOD CARBON MONOXIDE INCREASED [None]
  - COUGH [None]
  - PERFORMANCE STATUS DECREASED [None]
  - RESPIRATORY FUME INHALATION DISORDER [None]
  - UMBILICAL HERNIA [None]
